FAERS Safety Report 8522514-5 (Version None)
Quarter: 2012Q3

REPORT INFORMATION
  Report Type: 
  Country: None (occurrence: None)
  Receive Date: 20120719
  Receipt Date: 20120712
  Transmission Date: 20120928
  Serious: Yes (Hospitalization)
  Sender: FDA-Public Use
  Company Number: US-CELGENEUS-163-21660-12071359

PATIENT
  Sex: Female
  Weight: 57.9 kg

DRUGS (29)
  1. HERCEPTIN [Suspect]
     Dosage: 120 MILLIGRAM
     Route: 065
     Dates: start: 20120605
  2. CIPROFLOXACIN [Concomitant]
     Route: 065
     Dates: start: 20120705
  3. ZOFRAN [Concomitant]
     Indication: NAUSEA
     Dosage: 8 MILLIGRAM
     Route: 041
     Dates: start: 20120706, end: 20120707
  4. HERCEPTIN [Suspect]
     Dosage: 120 MILLIGRAM
     Route: 065
     Dates: start: 20120612
  5. NEURONTIN [Concomitant]
     Dosage: 200 MILLIGRAM
     Route: 048
  6. PROTONIX [Concomitant]
     Indication: PROPHYLAXIS
     Dosage: 40 MILLIGRAM
     Route: 048
     Dates: start: 20120704, end: 20120708
  7. COLACE [Concomitant]
     Indication: CONSTIPATION
     Dosage: 200 MILLIGRAM
     Route: 048
     Dates: start: 20120704, end: 20120707
  8. LOVENOX [Concomitant]
     Indication: PROPHYLAXIS
     Dosage: 40 MILLIGRAM
     Route: 058
     Dates: start: 20120704, end: 20120707
  9. NEURONTIN [Concomitant]
     Indication: PAIN
     Dosage: 300 MILLIGRAM
     Route: 048
     Dates: start: 20120704
  10. NEUPOGEN [Concomitant]
     Indication: NEUTROPENIA
     Dosage: 300 MICROGRAM
     Route: 041
     Dates: start: 20120705, end: 20120706
  11. CIPROFLOXACIN [Concomitant]
     Indication: ANTI-INFECTIVE THERAPY
     Dosage: 400 MILLIGRAM
     Route: 041
     Dates: start: 20120705, end: 20120708
  12. CARBOPLATIN [Suspect]
     Indication: BREAST CANCER
     Dosage: 720 MILLIGRAM
     Route: 065
     Dates: start: 20120417, end: 20120626
  13. ATENOLOL [Concomitant]
     Indication: HYPERTENSION
     Dosage: 50 MILLIGRAM
     Route: 048
  14. ZOLPIDEM [Concomitant]
     Indication: INSOMNIA
     Dosage: 10 MILLIGRAM
     Route: 048
     Dates: start: 20120707, end: 20120708
  15. MAGNESIUM SULFATE [Concomitant]
     Dosage: 2000 MILLIGRAM
     Route: 041
     Dates: start: 20120707, end: 20120707
  16. IMODIUM [Concomitant]
     Route: 048
     Dates: start: 20120708
  17. ABRAXANE [Suspect]
     Indication: BREAST CANCER
     Dosage: 128 MILLIGRAM
     Route: 041
     Dates: start: 20120417, end: 20120626
  18. ABRAXANE [Suspect]
     Dosage: 118 MILLIGRAM
     Route: 041
  19. K-TAB [Concomitant]
     Indication: SUPPLEMENTATION THERAPY
     Dosage: 10 MILLIEQUIVALENTS
     Route: 048
  20. VICODIN [Concomitant]
     Indication: PAIN
     Dosage: 5/500
     Route: 048
     Dates: start: 20120704, end: 20120707
  21. ZOSYN [Concomitant]
     Indication: ANTI-INFECTIVE THERAPY
     Dosage: 3375 MILLIGRAM
     Route: 041
     Dates: start: 20120704, end: 20120708
  22. ZOFRAN [Concomitant]
     Indication: VOMITING
  23. VANCOMYCIN [Concomitant]
     Indication: ANTI-INFECTIVE THERAPY
     Dosage: 1 GRAM
     Route: 041
     Dates: start: 20120705, end: 20120708
  24. LEVAQUIN [Concomitant]
     Indication: ANTI-INFECTIVE THERAPY
     Dosage: 750 MILLIGRAM
     Route: 041
     Dates: start: 20120705
  25. MORPHINE SULFATE [Concomitant]
     Indication: PAIN
     Dosage: 2 MILLIGRAM
     Route: 041
     Dates: start: 20120704, end: 20120705
  26. HERCEPTIN [Suspect]
     Dosage: 2 MILLIGRAM
     Route: 065
     Dates: start: 20120529
  27. CIPROFLOXACIN HCL [Concomitant]
     Indication: EAR INFECTION
     Dosage: 4GTT
     Route: 065
     Dates: start: 20120704
  28. AUGMENTIN '500' [Concomitant]
     Indication: ANTI-INFECTIVE THERAPY
     Dosage: 875 MILLIGRAM
     Route: 048
     Dates: start: 20120707
  29. ACYCLOVIR [Concomitant]
     Dosage: 1200 MILLIGRAM
     Route: 048
     Dates: start: 20120429

REACTIONS (4)
  - OTITIS EXTERNA [None]
  - DIARRHOEA [None]
  - NEUTROPHIL COUNT DECREASED [None]
  - WHITE BLOOD CELL COUNT DECREASED [None]
